FAERS Safety Report 13265265 (Version 1)
Quarter: 2017Q1

REPORT INFORMATION
  Report Type: Spontaneous
  Country: US (occurrence: US)
  Receive Date: 20170223
  Receipt Date: 20170223
  Transmission Date: 20170428
  Serious: No
  Sender: FDA-Public Use
  Company Number: US-GLAXOSMITHKLINE-US2017024815

PATIENT
  Age: 73 Year
  Sex: Female

DRUGS (2)
  1. NICODERM CQ [Suspect]
     Active Substance: NICOTINE
     Indication: SMOKING CESSATION THERAPY
     Dosage: 21 MG, UNK
  2. NICODERM CQ [Suspect]
     Active Substance: NICOTINE
     Indication: SMOKING CESSATION THERAPY
     Dosage: 14 MG, UNK

REACTIONS (7)
  - Insomnia [Not Recovered/Not Resolved]
  - Drug intolerance [Unknown]
  - Dizziness [Recovered/Resolved]
  - Tremor [Recovered/Resolved]
  - Nervousness [Recovered/Resolved]
  - Nausea [Recovered/Resolved]
  - Feeling abnormal [Not Recovered/Not Resolved]
